FAERS Safety Report 8730902 (Version 2)
Quarter: 2013Q1

REPORT INFORMATION
  Report Type: Spontaneous
  Country: FR (occurrence: None)
  Receive Date: 20120801
  Receipt Date: 20130123
  Transmission Date: 20140127
  Serious: Yes (Death, Hospitalization, Other)
  Sender: FDA-Public Use
  Company Number: 2012FR0241

PATIENT
  Age: 37 Year
  Sex: Female

DRUGS (7)
  1. KINERET [Suspect]
     Indication: PYODERMA GANGRENOSUM
     Dosage: 100 MG (100 MG, 1 IN 1 D) SUBCUTANEOUS
     Route: 058
     Dates: start: 20120402
  2. PREDNISONE [Concomitant]
  3. CORTANCYL [Concomitant]
  4. CIPROFLOXACIN (CIPROFLOXACIN) [Concomitant]
  5. FLAGYL [Concomitant]
  6. CORTICOTHERAPY (CORTICOTHERAPY) [Concomitant]
  7. DUAL-ANTIBIOTIC THERAPY (DUAL-ANTIBIOTIC) [Concomitant]

REACTIONS (6)
  - Diarrhoea [None]
  - Crohn^s disease [None]
  - Disease recurrence [None]
  - Multi-organ failure [None]
  - Oesophageal varices haemorrhage [None]
  - Rectal haemorrhage [None]
